FAERS Safety Report 8207748-1 (Version None)
Quarter: 2012Q1

REPORT INFORMATION
  Report Type: 
  Country: None (occurrence: None)
  Receive Date: 20120313
  Receipt Date: 20120313
  Transmission Date: 20120608
  Serious: Yes (Hospitalization)
  Sender: FDA-Public Use
  Company Number: None

PATIENT
  Age: 79 Year
  Sex: Male
  Weight: 85.5 kg

DRUGS (1)
  1. GABAPENTIN [Suspect]
     Indication: PAIN
     Dosage: 300 MG TID PO
     Route: 048
     Dates: start: 20120215, end: 20120219

REACTIONS (4)
  - TOXICITY TO VARIOUS AGENTS [None]
  - ATAXIA [None]
  - TREMOR [None]
  - RENAL FAILURE CHRONIC [None]
